FAERS Safety Report 5052269-0 (Version None)
Quarter: 2006Q2

REPORT INFORMATION
  Report Type: 
  Country: None (occurrence: None)
  Receive Date: 20060614
  Receipt Date: 20060222
  Transmission Date: 20061013
  Serious: Yes (Other)
  Sender: FDA-Public Use
  Company Number: 437928

PATIENT
  Age: 77 Year
  Sex: Female

DRUGS (14)
  1. BONIVA [Suspect]
     Indication: OSTEOPOROSIS
     Dosage: 1 PER MONTH ORAL
     Route: 048
     Dates: start: 20051213
  2. PREDNISONE TAB [Concomitant]
  3. ATARAX [Concomitant]
  4. FOLIC ACID [Concomitant]
  5. PREVACID [Concomitant]
  6. LASIX [Concomitant]
  7. UNSPECIFIED MEDICATION (GENERIC UNKNOWN) [Concomitant]
  8. DITROPAN XL [Concomitant]
  9. ISOSORBIDE (ISOSORBIDE) [Concomitant]
  10. COLACE (DOCUSATE SODIUM) [Concomitant]
  11. CALCIUM CITRATE (CALCIUM CITRATE) [Concomitant]
  12. K-DUR 10 [Concomitant]
  13. TYLENOL #3 (*CAFFEINE/CODEINE PHOSPHATE/PARACETAMOL) [Concomitant]
  14. MIACALCIN NASAL SPRAY (SALCATONIN) [Concomitant]

REACTIONS (1)
  - PAIN IN EXTREMITY [None]
